FAERS Safety Report 4559336-6 (Version None)
Quarter: 2005Q1

REPORT INFORMATION
  Report Type: 
  Country: None (occurrence: None)
  Receive Date: 20050124
  Receipt Date: 20050111
  Transmission Date: 20050727
  Serious: Yes (Hospitalization)
  Sender: FDA-Public Use
  Company Number: FR-JNJFOC-20050101311

PATIENT
  Age: 50 Year
  Sex: Male

DRUGS (6)
  1. TOPALGIC [Suspect]
     Indication: BACK PAIN
     Route: 049
  2. PROFENID [Suspect]
     Indication: BACK PAIN
     Route: 049
  3. MYOLASTAN [Suspect]
     Indication: BACK PAIN
     Route: 049
  4. OMEPRAZOLE [Suspect]
     Indication: ULCER
     Route: 049
  5. KLIPAL [Suspect]
     Route: 049
  6. KLIPAL [Suspect]
     Indication: BACK PAIN
     Route: 049

REACTIONS (3)
  - ABDOMINAL PAIN [None]
  - CHOLECYSTITIS [None]
  - HEPATITIS [None]
